FAERS Safety Report 12038902 (Version 1)
Quarter: 2016Q1

REPORT INFORMATION
  Report Type: Report from Study
  Country: US (occurrence: US)
  Receive Date: 20160208
  Receipt Date: 20160208
  Transmission Date: 20160526
  Serious: No
  Sender: FDA-Public Use
  Company Number: US-AMAG PHARMACEUTICALS, INC.-AMAG201600070

PATIENT

DRUGS (3)
  1. VITAMIN B6 [Concomitant]
     Active Substance: PYRIDOXINE HYDROCHLORIDE
     Dosage: UNK
  2. MAKENA [Suspect]
     Active Substance: HYDROXYPROGESTERONE CAPROATE
     Indication: PREMATURE DELIVERY
     Dosage: UNK UNK, WEEKLY
     Route: 030
     Dates: start: 20151210
  3. PROGESTERONE SUPPOSITORIES [Concomitant]
     Dosage: UNK
     Route: 067

REACTIONS (1)
  - Premature labour [Unknown]

NARRATIVE: CASE EVENT DATE: 20160119
